FAERS Safety Report 10360936 (Version 3)
Quarter: 2014Q4

REPORT INFORMATION
  Report Type: Spontaneous
  Country: DE (occurrence: DE)
  Receive Date: 20140804
  Receipt Date: 20141209
  Transmission Date: 20150528
  Serious: Yes (Death, Other)
  Sender: FDA-Public Use
  Company Number: DE-PFIZER INC-2014213289

PATIENT
  Age: 79 Year
  Sex: Female
  Weight: 65 kg

DRUGS (17)
  1. REVATIO [Suspect]
     Active Substance: SILDENAFIL CITRATE
     Indication: PULMONARY ARTERIAL HYPERTENSION
     Dosage: 40 MG, 3X/DAY
     Route: 048
     Dates: start: 201403
  2. BELOC ZOK [Concomitant]
     Active Substance: METOPROLOL SUCCINATE
     Dosage: 95 MG, 2X/DAY
     Route: 048
  3. DIGIMERCK PICO [Concomitant]
     Dosage: 0.05 UNK, 1X/DAY
  4. EUTHYROX [Concomitant]
     Active Substance: LEVOTHYROXINE SODIUM
     Dosage: 50 UG, 1X/DAY
     Route: 048
  5. MIRTAZAPIN 1 A PHARMA [Concomitant]
     Dosage: 15 MG, DAILY
  6. PROMETHAZIN ^NEURAXPHARM^ [Concomitant]
     Dosage: 25 MG, 12.5MG AS NEEDED
     Route: 048
  7. OXYGEN. [Concomitant]
     Active Substance: OXYGEN
     Dosage: 2 L, AT REST AND AT NIGHT
     Route: 055
  8. PARACETAMOL COMP [Concomitant]
     Indication: PAIN
     Dosage: UP TO 1 DF, 4X/DAY
  9. OXYGEN. [Concomitant]
     Active Substance: OXYGEN
     Dosage: 4 L, AT STRESS
  10. COCODAMOL [Concomitant]
     Active Substance: ACETAMINOPHEN\CODEINE PHOSPHATE
     Indication: PAIN
     Dosage: UP TO 4 TABLETS DAILY, AS NEEDED
     Route: 048
  11. MARCUPHEN-CT [Concomitant]
     Dosage: 5 X 1/2 2X 1/2
  12. VIGANTOLETTEN [Concomitant]
     Active Substance: CHOLECALCIFEROL
     Dosage: 1000 MG, DAILY
     Route: 048
  13. ALLOPURINOL ^1A FARMA^ [Concomitant]
     Dosage: ALLOPURINOL 300, 150 MG, DAILY
     Route: 048
  14. METAMIZOL [Concomitant]
     Active Substance: METAMIZOLE SODIUM
     Indication: PAIN
     Dosage: UP TO 4000 MG/D, AS NEEDED
     Route: 048
  15. MARCUPHEN-CT [Concomitant]
     Dosage: 3MG TABLETS, DOSE DEPENDING ON INR
     Route: 048
  16. TORASEMID HEXAL [Concomitant]
     Dosage: 200 MG TABLETS, 150 MG, DAILY
     Route: 048
  17. NOVAMINOSULFON [Concomitant]
     Active Substance: METAMIZOLE SODIUM
     Indication: PAIN
     Dosage: UP TO 1000 MG, 4X/DAY
     Route: 048

REACTIONS (2)
  - Pulmonary hypertension [Fatal]
  - Sudden cardiac death [Fatal]

NARRATIVE: CASE EVENT DATE: 20140730
